FAERS Safety Report 6738864-9 (Version None)
Quarter: 2010Q2

REPORT INFORMATION
  Report Type: 
  Country: None (occurrence: None)
  Receive Date: 20100520
  Receipt Date: 20100507
  Transmission Date: 20101027
  Serious: Yes (Other)
  Sender: FDA-Public Use
  Company Number: 1000013845

PATIENT
  Age: 29 Year
  Sex: Female

DRUGS (1)
  1. LEXAPRO [Suspect]
     Indication: DEPRESSION
     Dosage: 20 MG (20  MG, 1 IN 1 D), ORAL
     Route: 048
     Dates: start: 20070101

REACTIONS (3)
  - CONVULSION [None]
  - HYPERREFLEXIA [None]
  - NERVOUS SYSTEM DISORDER [None]
